FAERS Safety Report 11921812 (Version 1)
Quarter: 2016Q1

REPORT INFORMATION
  Report Type: Spontaneous
  Country: DK (occurrence: DK)
  Receive Date: 20160115
  Receipt Date: 20160115
  Transmission Date: 20160526
  Serious: Yes (Hospitalization)
  Sender: FDA-Public Use
  Company Number: PHHY2016DK001438

PATIENT
  Age: 53 Year
  Sex: Male

DRUGS (9)
  1. CENTYL MED KALIUMKLORID [Suspect]
     Active Substance: BENDROFLUMETHIAZIDE\POTASSIUM CHLORIDE
     Indication: HYPERTENSION
     Dosage: DOSAGE: UNSPECIFIED, STRENGTH: UNSPECIFIED
     Route: 048
     Dates: start: 201511, end: 201512
  2. PREDNISOLON [Concomitant]
     Active Substance: PREDNISOLONE
     Indication: CHRONIC OBSTRUCTIVE PULMONARY DISEASE
     Route: 065
     Dates: start: 20151201
  3. VITAMIN D3 [Concomitant]
     Active Substance: CHOLECALCIFEROL
     Indication: VITAMIN SUPPLEMENTATION
     Route: 065
  4. DOLOL [Concomitant]
     Active Substance: TRAMADOL
     Indication: PAIN
     Route: 065
  5. VIBRADOX [Suspect]
     Active Substance: DOXYCYCLINE
     Indication: CHRONIC OBSTRUCTIVE PULMONARY DISEASE
     Dosage: DOSAGE UNSPECIFIED, STRENGTH: 100 MG
     Route: 048
     Dates: start: 20151201, end: 20151201
  6. PANTOPRAZOLE [Concomitant]
     Active Substance: PANTOPRAZOLE SODIUM
     Indication: GASTROOESOPHAGEAL REFLUX DISEASE
     Route: 065
  7. PINEX                                   /DEN/ [Concomitant]
     Indication: PAIN
     Route: 065
  8. BUVENTOL EASYHALER [Suspect]
     Active Substance: ALBUTEROL SULFATE
  9. BUVENTOL [Concomitant]
     Indication: CHRONIC OBSTRUCTIVE PULMONARY DISEASE
     Route: 065

REACTIONS (3)
  - Nausea [Recovered/Resolved]
  - Vomiting [Recovered/Resolved]
  - Hyponatraemia [Recovering/Resolving]

NARRATIVE: CASE EVENT DATE: 201512
